FAERS Safety Report 9524663 (Version 1)
Quarter: 2013Q2

REPORT INFORMATION
  Report Type: Spontaneous
  Country: US (occurrence: None)
  Receive Date: 20130513
  Receipt Date: 20130513
  Transmission Date: 20140414
  Serious: Yes (Other)
  Sender: FDA-Public Use
  Company Number: 1000040087

PATIENT
  Age: 27 Year
  Sex: Female

DRUGS (7)
  1. SAVELLA [Suspect]
     Indication: FIBROMYALGIA
     Dosage: 12.5 MG (12.5 MG, 1 IN 1 D), ORAL
     Route: 048
     Dates: start: 2012, end: 2012
  2. SAVELLA [Suspect]
     Indication: POST VIRAL FATIGUE SYNDROME
     Dosage: 12.5 MG (12.5 MG, 1 IN 1 D), ORAL
     Route: 048
     Dates: start: 2012, end: 2012
  3. SAVELLA [Suspect]
     Indication: FIBROMYALGIA
     Dosage: 50 MG BID (50 MG, 2 IN 1 D), ORAL
     Route: 048
     Dates: start: 2012, end: 201209
  4. SAVELLA [Suspect]
     Indication: POST VIRAL FATIGUE SYNDROME
     Dosage: 50 MG BID (50 MG, 2 IN 1 D), ORAL
     Route: 048
     Dates: start: 2012, end: 201209
  5. LYRICA (PREGABALIN) (PREGABALIN) [Concomitant]
  6. ATENOLOL (ATENOLOL) (ATENOLOL) [Concomitant]
  7. NEXIUM (ESOMEPRAZOLE) (ESOMEPRAZOLE) [Concomitant]

REACTIONS (1)
  - Sensation of blood flow [None]
